FAERS Safety Report 9242964 (Version 3)
Quarter: 2013Q3

REPORT INFORMATION
  Report Type: Spontaneous
  Country: ZA (occurrence: ZA)
  Receive Date: 20130420
  Receipt Date: 20130711
  Transmission Date: 20140515
  Serious: Yes (Other)
  Sender: FDA-Public Use
  Company Number: ZA-ABBOTT-13X-143-1078176-00

PATIENT
  Age: 20 Year
  Sex: Female

DRUGS (6)
  1. EPILIM [Suspect]
     Indication: BIPOLAR DISORDER
     Dosage: AT BEDTIME
     Route: 048
     Dates: start: 2011
  2. EPILIM [Suspect]
     Route: 048
  3. EPILIM [Suspect]
     Route: 048
  4. EPILIM [Suspect]
     Route: 048
  5. EPILIM [Suspect]
     Route: 048
     Dates: end: 2013
  6. AROPAX [Concomitant]
     Indication: PRODUCT USED FOR UNKNOWN INDICATION

REACTIONS (7)
  - Rectal haemorrhage [Recovering/Resolving]
  - Vitamin C deficiency [Recovering/Resolving]
  - Mouth haemorrhage [Unknown]
  - Contusion [Unknown]
  - Arthralgia [Recovering/Resolving]
  - Nausea [Unknown]
  - Decreased appetite [Unknown]
